FAERS Safety Report 4831838-4 (Version None)
Quarter: 2005Q4

REPORT INFORMATION
  Report Type: 
  Country: None (occurrence: None)
  Receive Date: 20051118
  Receipt Date: 20000229
  Transmission Date: 20060501
  Serious: Yes (Disabling, Other)
  Sender: FDA-Public Use
  Company Number: 00D--10277

PATIENT
  Sex: Male
  Weight: 16 kg

DRUGS (1)
  1. DESFERAL [Suspect]
     Indication: IRON METABOLISM DISORDER
     Route: 058
     Dates: start: 19970301, end: 19991001

REACTIONS (8)
  - BLINDNESS [None]
  - HEARING IMPAIRED [None]
  - NAUSEA [None]
  - NEUROTOXICITY [None]
  - OPTIC ATROPHY [None]
  - OPTIC NEUROPATHY [None]
  - OVERDOSE [None]
  - VISUAL ACUITY REDUCED [None]
